FAERS Safety Report 15247598 (Version 10)
Quarter: 2023Q1

REPORT INFORMATION
  Report Type: Other
  Country: CA (occurrence: None)
  Receive Date: 20180807
  Receipt Date: 20230130
  Transmission Date: 20230417
  Serious: Yes (Other)
  Sender: FDA-Public Use
  Company Number: CA-ROCHE-2159739

PATIENT
  Age: 48 Year
  Sex: Female

DRUGS (5)
  1. OCREVUS [Suspect]
     Active Substance: OCRELIZUMAB
     Indication: Relapsing-remitting multiple sclerosis
     Dosage: 300 MG DAY 0 AND 14 THEN 600 MG Q 6 MONTHS?08/AUG/2019
     Route: 042
     Dates: start: 20180719
  2. RAMIPRIL [Concomitant]
     Active Substance: RAMIPRIL
     Indication: Blood pressure measurement
  3. LEVOTHYROXINE [Concomitant]
     Active Substance: LEVOTHYROXINE
  4. TRAMADOL [Concomitant]
     Active Substance: TRAMADOL
     Indication: Pain
     Dosage: AS REQUIRED
  5. PROCAINE [Concomitant]
     Active Substance: PROCAINE
     Indication: Pain
     Dates: start: 201904, end: 20190807

REACTIONS (14)
  - Constipation [Not Recovered/Not Resolved]
  - Abdominal pain [Recovered/Resolved]
  - Dizziness [Not Recovered/Not Resolved]
  - Headache [Not Recovered/Not Resolved]
  - Feeling abnormal [Not Recovered/Not Resolved]
  - Weight increased [Not Recovered/Not Resolved]
  - Back pain [Unknown]
  - Headache [Unknown]
  - Neck pain [Unknown]
  - Pharyngeal swelling [Recovered/Resolved]
  - Infusion related reaction [Unknown]
  - Pneumonia [Recovered/Resolved]
  - Nasopharyngitis [Unknown]
  - Feeling abnormal [Not Recovered/Not Resolved]

NARRATIVE: CASE EVENT DATE: 20190808
